FAERS Safety Report 9675628 (Version 3)
Quarter: 2013Q4

REPORT INFORMATION
  Report Type: Report from Study
  Country: CA (occurrence: CA)
  Receive Date: 20131107
  Receipt Date: 20131121
  Transmission Date: 20140711
  Serious: Yes (Hospitalization, Other)
  Sender: FDA-Public Use
  Company Number: CA-BAYER-2013-130880

PATIENT
  Age: 77 Year
  Sex: Male

DRUGS (2)
  1. STIVARGA [Suspect]
     Indication: COLORECTAL CANCER METASTATIC
     Dosage: 80 MG, QD
     Route: 048
     Dates: start: 20131025
  2. METHOTREXATE [Interacting]
     Dosage: UNK; UNK
     Route: 048
     Dates: start: 20131025

REACTIONS (8)
  - Labelled drug-drug interaction medication error [None]
  - Asthenia [None]
  - Dizziness [None]
  - Pancreatic enzymes increased [Recovering/Resolving]
  - Constipation [None]
  - Fall [None]
  - Blood pressure increased [Recovering/Resolving]
  - Neoplasm [None]
